APPROVED DRUG PRODUCT: DEPO-MEDROL
Active Ingredient: METHYLPREDNISOLONE ACETATE
Strength: 40MG/ML
Dosage Form/Route: INJECTABLE;INJECTION
Application: N011757 | Product #001 | TE Code: AB
Applicant: PFIZER INC
Approved: Approved Prior to Jan 1, 1982 | RLD: Yes | RS: No | Type: RX